FAERS Safety Report 14990361 (Version 1)
Quarter: 2018Q2

REPORT INFORMATION
  Report Type: Spontaneous
  Country: US (occurrence: US)
  Receive Date: 20180608
  Receipt Date: 20180608
  Transmission Date: 20180711
  Serious: No
  Sender: FDA-Public Use
  Company Number: US-ROCHE-2082104

PATIENT
  Age: 31 Year
  Sex: Female

DRUGS (2)
  1. ACTEMRA [Suspect]
     Active Substance: TOCILIZUMAB
     Indication: JOINT ANKYLOSIS
     Route: 058
     Dates: start: 20150708
  2. ACTEMRA [Suspect]
     Active Substance: TOCILIZUMAB
     Indication: PSORIATIC ARTHROPATHY

REACTIONS (3)
  - Off label use [Unknown]
  - Intentional product use issue [Unknown]
  - Renal disorder [Unknown]

NARRATIVE: CASE EVENT DATE: 20180222
